FAERS Safety Report 18557024 (Version 2)
Quarter: 2021Q1

REPORT INFORMATION
  Report Type: Report from Study
  Country: BR (occurrence: BR)
  Receive Date: 20201129
  Receipt Date: 20210105
  Transmission Date: 20210419
  Serious: Yes (Hospitalization)
  Sender: FDA-Public Use
  Company Number: BR-BIOGEN-2019BI00805703

PATIENT
  Age: 34 Year
  Sex: Female

DRUGS (5)
  1. TYSABRI [Suspect]
     Active Substance: NATALIZUMAB
     Route: 042
     Dates: start: 20140710
  2. DUAL (DULOXETINE HYDROCHLORIDE) [Concomitant]
     Indication: ANXIETY
     Route: 065
  3. VITAMIN D [Concomitant]
     Active Substance: VITAMIN D NOS
     Indication: MULTIPLE SCLEROSIS
     Route: 065
  4. TYSABRI [Suspect]
     Active Substance: NATALIZUMAB
     Indication: MULTIPLE SCLEROSIS
     Route: 042
     Dates: start: 20140710, end: 20191104
  5. TYSABRI [Suspect]
     Active Substance: NATALIZUMAB
     Route: 042
     Dates: start: 201407

REACTIONS (12)
  - Pain [Not Recovered/Not Resolved]
  - Weight decreased [Unknown]
  - Oropharyngeal pain [Recovered/Resolved]
  - Coagulopathy [Unknown]
  - Decreased immune responsiveness [Unknown]
  - Restless legs syndrome [Not Recovered/Not Resolved]
  - Dysphonia [Not Recovered/Not Resolved]
  - Weight increased [Not Recovered/Not Resolved]
  - Vitamin D deficiency [Not Recovered/Not Resolved]
  - Affective disorder [Unknown]
  - Ligament sprain [Not Recovered/Not Resolved]
  - Urinary tract infection bacterial [Not Recovered/Not Resolved]

NARRATIVE: CASE EVENT DATE: 2016
